FAERS Safety Report 4300355-2 (Version None)
Quarter: 2004Q1

REPORT INFORMATION
  Report Type: 
  Country: None (occurrence: None)
  Receive Date: 20040220
  Receipt Date: 20031217
  Transmission Date: 20041129
  Serious: Yes (Hospitalization)
  Sender: FDA-Public Use
  Company Number: US-GLAXOSMITHKLINE-A0443566A

PATIENT
  Age: 78 Year
  Sex: Male

DRUGS (13)
  1. TOPOTECAN [Suspect]
     Indication: NON-SMALL CELL LUNG CANCER
     Dosage: 2MGM2 SEE DOSAGE TEXT
     Route: 042
     Dates: start: 20031107
  2. NAVELBINE [Suspect]
     Indication: NON-SMALL CELL LUNG CANCER
     Route: 042
     Dates: start: 20031107
  3. ZOFRAN [Concomitant]
  4. PROMETHAZINE [Concomitant]
  5. DURAGESIC [Concomitant]
  6. DULCOLAX [Concomitant]
  7. TRAZODONE HCL [Concomitant]
  8. LIPITOR [Concomitant]
  9. OXYCODONE HCL [Concomitant]
  10. NORVASC [Concomitant]
  11. ASPIRIN [Concomitant]
  12. COMPAZINE [Concomitant]
  13. COLACE [Concomitant]

REACTIONS (8)
  - ASTHENIA [None]
  - CONSTIPATION [None]
  - DEHYDRATION [None]
  - EATING DISORDER [None]
  - FATIGUE [None]
  - NAUSEA [None]
  - NEUTROPENIA [None]
  - VOMITING [None]
